FAERS Safety Report 10353690 (Version 1)
Quarter: 2014Q3

REPORT INFORMATION
  Report Type: Report from Study
  Country: US (occurrence: US)
  Receive Date: 20140731
  Receipt Date: 20140731
  Transmission Date: 20150326
  Serious: Yes (Other)
  Sender: FDA-Public Use
  Company Number: US-ROCHE-1438834

PATIENT
  Sex: Female

DRUGS (10)
  1. CYCLOPHOSPHAMIDE. [Suspect]
     Active Substance: CYCLOPHOSPHAMIDE
     Indication: HER-2 POSITIVE BREAST CANCER
     Dosage: CYCLOPHOSPHAMIDE (C) 600 MG/M2 BY INTRAVENOUS INFUSION OVER 30-60 MIN) GIVEN ON DAY 1 EVERY 2 WEEKS
     Route: 042
  2. PACLITAXEL. [Suspect]
     Active Substance: PACLITAXEL
     Indication: HER-2 POSITIVE BREAST CANCER
     Dosage: OVER 1 H GIVEN ON DAY 1 WEEKLY FOR UP TO 12 DOSES
     Route: 042
  3. DOXORUBICIN [Suspect]
     Active Substance: DOXORUBICIN
     Indication: HER-2 POSITIVE BREAST CANCER
     Dosage: DOXORUBICIN (A) (60 MG/M2 BY SLOW INTRAVENOUS PUSH OVER 10-15 MIN) GIVEN ON DAY 1 EVERY 2 WEEKS FOR
     Route: 050
  4. TRASTUZUMAB [Suspect]
     Active Substance: TRASTUZUMAB
     Indication: HER-2 POSITIVE BREAST CANCER
     Dosage: TRASTUZUMAB WAS ADMINISTERED WITH PACLITAXEL ONLY IN STRATUM A AND CONSISTED OF 4 MG/KG IV LOADING D
     Route: 042
  5. TRASTUZUMAB [Suspect]
     Active Substance: TRASTUZUMAB
     Dosage: POSTOPERATIVE TRASTUZUMAB WAS GIVEN (8 MG/KG LOADING DOSE, THEN 6 MG/KG EVERY 3 WEEKS) FOR 13 DOSES
     Route: 042
  6. VORINOSTAT [Suspect]
     Active Substance: VORINOSTAT
     Indication: HER-2 POSITIVE BREAST CANCER
     Dosage: VORINOSTAT WAS GIVEN AT A DOSE OF 200 OR 300 PO TWICE DAILY ON DAYS 1-3 OF EACH WEEKLY PACLITAXEL DO
     Route: 048
  7. TRASTUZUMAB [Suspect]
     Active Substance: TRASTUZUMAB
     Dosage: POSTOPERATIVE TRASTUZUMAB WAS GIVEN (8 MG/KG LOADING DOSE, THEN 6 MG/KG EVERY 3 WEEKS) FOR 13 DOSES
     Route: 042
  8. TRASTUZUMAB [Suspect]
     Active Substance: TRASTUZUMAB
     Dosage: TRASTUZUMAB WAS ADMINISTERED WITH PACLITAXEL ONLY IN STRATUM A AND SUBSEQUENT DOSES AFTER LOADING DO
     Route: 042
  9. DEXAMETHASONE. [Concomitant]
     Active Substance: DEXAMETHASONE
     Indication: PREMEDICATION
     Dosage: 10 MG IV PRIOR TO THE FIRST PACLITAXEL DOSE
     Route: 042
  10. DEXAMETHASONE. [Concomitant]
     Active Substance: DEXAMETHASONE
     Dosage: 4 MG PRIOR TO EACH SUBSEQUENT PACLITAXEL DOSE
     Route: 042

REACTIONS (8)
  - Headache [Unknown]
  - Nausea [Unknown]
  - Neutropenia [Unknown]
  - Anaemia [Unknown]
  - Fatigue [Unknown]
  - Diarrhoea [Unknown]
  - Hyperglycaemia [Unknown]
  - Electrocardiogram QT prolonged [Unknown]
